FAERS Safety Report 10068084 (Version 1)
Quarter: 2014Q2

REPORT INFORMATION
  Report Type: Spontaneous
  Country: FR (occurrence: FR)
  Receive Date: 20140409
  Receipt Date: 20140409
  Transmission Date: 20141212
  Serious: Yes (Other)
  Sender: FDA-Public Use
  Company Number: PHHY2014FR042832

PATIENT
  Age: 81 Year
  Sex: Male

DRUGS (8)
  1. ZOMETA [Suspect]
     Indication: HYPERCALCAEMIA OF MALIGNANCY
     Dosage: 1 DF, QD
     Route: 042
     Dates: start: 20131202, end: 20131202
  2. ZOMETA [Suspect]
     Dosage: UNK UKN, UNK
     Dates: start: 20131205
  3. CLASTOBAN [Suspect]
     Dosage: 1600 MG, QD
     Dates: start: 20140107, end: 20140204
  4. KARDEGIC [Concomitant]
  5. LYRICA [Concomitant]
  6. METFORMIN [Concomitant]
  7. PERMIXON [Concomitant]
  8. SIMVASTATIN [Concomitant]

REACTIONS (1)
  - Osteonecrosis [Not Recovered/Not Resolved]
